FAERS Safety Report 14163601 (Version 1)
Quarter: 2017Q4

REPORT INFORMATION
  Report Type: Spontaneous
  Country: RU (occurrence: RU)
  Receive Date: 20171107
  Receipt Date: 20171107
  Transmission Date: 20180321
  Serious: Yes (Hospitalization)
  Sender: FDA-Public Use
  Company Number: RU-ACCORD-060643

PATIENT
  Age: 52 Year
  Sex: Female

DRUGS (3)
  1. DOXORUBICIN [Suspect]
     Active Substance: DOXORUBICIN
     Indication: BREAST CANCER
     Dosage: 0.531 G (APPROXIMATELY 0.05 G/M2 PER CYCLE)
  2. CYCLOPHOSPHAMIDE/CYCLOPHOSPHAMIDE MONOHYDRATE [Suspect]
     Active Substance: CYCLOPHOSPHAMIDE
     Indication: BREAST CANCER
  3. FLUOROURACIL. [Suspect]
     Active Substance: FLUOROURACIL
     Indication: BREAST CANCER

REACTIONS (16)
  - Ventricular tachycardia [None]
  - Leukocytosis [None]
  - Hypoproteinaemia [None]
  - Pulmonary infarction [None]
  - Ascites [None]
  - Liver function test increased [None]
  - Pulmonary hypertension [None]
  - Pulmonary embolism [None]
  - Myocardial ischaemia [None]
  - Tricuspid valve incompetence [None]
  - Deep vein thrombosis [None]
  - Mitral valve incompetence [None]
  - Cardiomyopathy [Unknown]
  - Anaemia [None]
  - Pleural effusion [None]
  - Intracardiac thrombus [None]
